FAERS Safety Report 4432082-5 (Version None)
Quarter: 2004Q3

REPORT INFORMATION
  Report Type: 
  Country: None (occurrence: None)
  Receive Date: 20040825
  Receipt Date: 20040709
  Transmission Date: 20050211
  Serious: Yes (Other)
  Sender: FDA-Public Use
  Company Number: AU-AMGEN-US084764

PATIENT
  Sex: Female

DRUGS (4)
  1. ENBREL [Suspect]
     Indication: RHEUMATOID ARTHRITIS
     Route: 058
     Dates: start: 20040623, end: 20040710
  2. PLAQUENIL [Concomitant]
  3. OMEGA 3 [Concomitant]
  4. ACETAMINOPHEN W/ CODEINE [Concomitant]

REACTIONS (4)
  - CONDITION AGGRAVATED [None]
  - HEART RATE INCREASED [None]
  - PALPITATIONS [None]
  - RHEUMATOID ARTHRITIS [None]
